FAERS Safety Report 9182613 (Version 1)
Quarter: 2013Q1

REPORT INFORMATION
  Report Type: Spontaneous
  Country: US (occurrence: US)
  Receive Date: 20130322
  Receipt Date: 20130322
  Transmission Date: 20140127
  Serious: No
  Sender: FDA-Public Use
  Company Number: US-BRISTOL-MYERS SQUIBB COMPANY-16849044

PATIENT
  Age: 74 Year
  Sex: Male
  Weight: 104.31 kg

DRUGS (1)
  1. ERBITUX [Suspect]
     Indication: HEAD AND NECK CANCER
     Dosage: STARTED 5 WEEKS AGO. 5 WEEK?LOADING DOSE-400MG/M2 AND WEEKLY DOSE 250MG/M2
     Route: 042
     Dates: start: 20120712, end: 201208

REACTIONS (2)
  - Rash [Recovering/Resolving]
  - Oropharyngeal pain [Unknown]
